FAERS Safety Report 7645994-6 (Version None)
Quarter: 2011Q3

REPORT INFORMATION
  Report Type: 
  Country: None (occurrence: None)
  Receive Date: 20110731
  Receipt Date: 20110721
  Transmission Date: 20111222
  Serious: Yes (Other)
  Sender: FDA-Public Use
  Company Number: PHHY2011US67662

PATIENT
  Age: 45 Year
  Sex: Male

DRUGS (2)
  1. PEGYLATED INTERFERON ALPHA 2B [Suspect]
     Indication: HEPATITIS C
  2. RIBAVIRIN [Suspect]
     Indication: HEPATITIS C
     Dosage: 2 DF, UNK
     Route: 048

REACTIONS (1)
  - COUGH [None]
